FAERS Safety Report 25992496 (Version 1)
Quarter: 2025Q4

REPORT INFORMATION
  Report Type: Spontaneous
  Country: US (occurrence: US)
  Receive Date: 20251103
  Receipt Date: 20251103
  Transmission Date: 20260117
  Serious: No
  Sender: GALPHARM INTERNATIONAL
  Company Number: US-PERRIGO-24US011391

PATIENT
  Age: 26 Year
  Sex: Female
  Weight: 42.63 kg

DRUGS (2)
  1. DOXYLAMINE SUCCINATE [Suspect]
     Active Substance: DOXYLAMINE SUCCINATE
     Indication: Insomnia
     Dosage: 75 MG, QHS
     Route: 048
     Dates: start: 20241120, end: 20241123
  2. NYQUIL Z [Concomitant]
     Indication: Insomnia
     Dosage: UNK
     Route: 065
     Dates: start: 20241123

REACTIONS (3)
  - Night sweats [Recovered/Resolved]
  - Drug ineffective [Unknown]
  - Overdose [Unknown]

NARRATIVE: CASE EVENT DATE: 20241120
